FAERS Safety Report 5685061-4 (Version None)
Quarter: 2008Q1

REPORT INFORMATION
  Report Type: 
  Country: None (occurrence: None)
  Receive Date: 20080328
  Receipt Date: 20000324
  Transmission Date: 20080703
  Serious: Yes (Death)
  Sender: FDA-Public Use
  Company Number: CH-ROCHE-232392

PATIENT
  Age: 52 Year
  Sex: Female

DRUGS (5)
  1. ROCEPHIN [Suspect]
     Indication: ERYSIPELAS
     Route: 030
     Dates: start: 20000319, end: 20000319
  2. ROCEPHIN [Suspect]
     Route: 030
     Dates: start: 20000320
  3. DIFLUCAN [Concomitant]
     Indication: VAGINAL INFECTION
  4. NOZINAN [Concomitant]
  5. KLIOGEST (SWITZERLAND) [Concomitant]
     Indication: HORMONE REPLACEMENT THERAPY

REACTIONS (1)
  - DEATH [None]
